FAERS Safety Report 21611044 (Version 1)
Quarter: 2022Q4

REPORT INFORMATION
  Report Type: Spontaneous
  Country: US (occurrence: US)
  Receive Date: 20221117
  Receipt Date: 20221117
  Transmission Date: 20230113
  Serious: No
  Sender: FDA-Public Use
  Company Number: US-BAUSCHBL-2022BNL001971

PATIENT
  Age: 63 Year
  Sex: Female
  Weight: 86.260 kg

DRUGS (1)
  1. ALAWAY [Suspect]
     Active Substance: KETOTIFEN FUMARATE
     Indication: Eye allergy
     Route: 047
     Dates: start: 20221110, end: 20221111

REACTIONS (3)
  - Hordeolum [Unknown]
  - Blepharitis [Unknown]
  - Instillation site swelling [Unknown]

NARRATIVE: CASE EVENT DATE: 20221101
